FAERS Safety Report 19299020 (Version 2)
Quarter: 2021Q2

REPORT INFORMATION
  Report Type: Report from Study
  Country: IT (occurrence: IT)
  Receive Date: 20210524
  Receipt Date: 20210527
  Transmission Date: 20210717
  Serious: Yes (Life-Threatening)
  Sender: FDA-Public Use
  Company Number: IT-GLAXOSMITHKLINE-IT2021GSK110294

PATIENT
  Age: 58 Year
  Sex: Male
  Weight: 60.5 kg

DRUGS (3)
  1. ACETAMINOPHEN + CODEIN [Concomitant]
     Indication: PAIN
     Dosage: 500 / 30 MG, TID
     Route: 048
     Dates: start: 20210421
  2. NIRAPARIB [Suspect]
     Active Substance: NIRAPARIB
     Indication: SQUAMOUS CELL CARCINOMA OF HEAD AND NECK
     Dosage: 200 MG, QD
     Route: 048
     Dates: start: 20210112, end: 20210516
  3. LEVOTHYROXINE. [Concomitant]
     Active Substance: LEVOTHYROXINE
     Indication: HYPOTHYROIDISM
     Dosage: 125 UG, QD
     Route: 048
     Dates: start: 20210421

REACTIONS (1)
  - Respiratory failure [Unknown]

NARRATIVE: CASE EVENT DATE: 20210517
